FAERS Safety Report 24580504 (Version 1)
Quarter: 2024Q4

REPORT INFORMATION
  Report Type: Spontaneous
  Country: US (occurrence: None)
  Receive Date: 20241104
  Receipt Date: 20241104
  Transmission Date: 20250114
  Serious: Yes (Hospitalization, Other)
  Sender: Public
  Company Number: None

PATIENT
  Age: 34 Year
  Sex: Female
  Weight: 99.3 kg

DRUGS (1)
  1. SKYRIZI [Suspect]
     Active Substance: RISANKIZUMAB-RZAA
     Indication: Crohn^s disease
     Dosage: 600 MG EVERY 4 WEEKS  INTRAVENOUS?
     Route: 042
     Dates: start: 20240925, end: 20241025

REACTIONS (5)
  - Cerebellar infarction [None]
  - Migraine [None]
  - Dizziness [None]
  - Vertigo [None]
  - Gait disturbance [None]

NARRATIVE: CASE EVENT DATE: 20241030
